FAERS Safety Report 8770446 (Version 1)
Quarter: 2012Q4

REPORT INFORMATION
  Report Type: 
  Country: DK (occurrence: DK)
  Receive Date: 20120906
  Receipt Date: 20120906
  Transmission Date: 20130627
  Serious: Yes (Hospitalization)
  Sender: FDA-Public Use
  Company Number: DK-BAYER-2012-092265

PATIENT
  Age: 57 Year
  Sex: Female

DRUGS (2)
  1. AVELOX [Suspect]
     Indication: ERYSIPELAS
     Dosage: 400 mg, QD
     Route: 048
     Dates: start: 20120805, end: 20120808
  2. DALACIN [Concomitant]
     Indication: ERYSIPELAS
     Dosage: UNK
     Dates: start: 20120805, end: 20120816

REACTIONS (1)
  - Delirium [Recovered/Resolved]
